FAERS Safety Report 10255770 (Version 2)
Quarter: 2014Q2

REPORT INFORMATION
  Report Type: Report from Study
  Country: BR (occurrence: BR)
  Receive Date: 20140624
  Receipt Date: 20140624
  Transmission Date: 20141212
  Serious: Yes (Other)
  Sender: FDA-Public Use
  Company Number: BR-GILEAD-2013-0084467

PATIENT
  Age: 24 Year
  Sex: Female

DRUGS (5)
  1. EMTRICITABINE/TENOFOVIR DISOPROXIL FUMARATE [Suspect]
     Indication: HIV INFECTION
     Dosage: 1 DF, QD
     Route: 048
     Dates: start: 20090402
  2. REYATAZ [Suspect]
     Indication: HIV INFECTION
     Dosage: 400 UNK, UNK
     Route: 048
     Dates: start: 20100929
  3. REYATAZ [Suspect]
     Dosage: 300 MG, QD
     Route: 048
     Dates: start: 20090402, end: 20100928
  4. ZIDOVUDINE W/LAMIVUDINE [Suspect]
     Indication: HIV INFECTION
     Dosage: 300 MG, QD
     Route: 048
     Dates: start: 20090402
  5. RITONAVIR [Suspect]
     Indication: HIV INFECTION
     Dosage: 100 MG, QD
     Route: 048
     Dates: start: 20090402

REACTIONS (2)
  - Pneumonia [Unknown]
  - Pregnancy [Recovered/Resolved]
